FAERS Safety Report 7267152-X (Version None)
Quarter: 2011Q1

REPORT INFORMATION
  Report Type: 
  Country: None (occurrence: None)
  Receive Date: 20110201
  Receipt Date: 20110121
  Transmission Date: 20110831
  Serious: Yes (Life-Threatening, Hospitalization, Other)
  Sender: FDA-Public Use
  Company Number: US-ELI_LILLY_AND_COMPANY-US201101005725

PATIENT
  Sex: Male
  Weight: 83.9 kg

DRUGS (9)
  1. CRESTOR [Concomitant]
     Indication: HYPERLIPIDAEMIA
     Dosage: 5 MG, DAILY (1/D)
     Route: 048
     Dates: end: 20101019
  2. LOPRESSOR [Concomitant]
     Indication: HYPERTENSION
     Dosage: 25 MG, 2/D
     Route: 048
  3. CRESTOR [Concomitant]
     Dosage: 5 MG, DAILY (1/D)
     Route: 048
     Dates: start: 20101021
  4. ZOCOR [Concomitant]
     Indication: HYPERLIPIDAEMIA
     Dosage: 20 MG, DAILY (1/D)
     Route: 048
     Dates: start: 20101020, end: 20101020
  5. PRASUGREL HYDROCHLORIDE [Suspect]
     Indication: ACUTE CORONARY SYNDROME
     Dosage: 10 MG, ONCE
     Dates: start: 20101020, end: 20101020
  6. PRASUGREL HYDROCHLORIDE [Suspect]
     Dosage: 10 MG, DAILY (1/D)
  7. DIOVAN [Concomitant]
     Indication: HYPERTENSION
     Dosage: 80 MG, DAILY (1/D)
     Route: 048
  8. ASPIRIN [Concomitant]
     Indication: ANTIPLATELET THERAPY
     Dosage: 325 MG, DAILY (1/D)
     Route: 048
  9. HEPARIN [Concomitant]
     Indication: ANTICOAGULANT THERAPY
     Dosage: 4000 IU, OTHER
     Route: 042
     Dates: start: 20101020, end: 20101020

REACTIONS (1)
  - NEOPLASM MALIGNANT [None]
